FAERS Safety Report 9846522 (Version 2)
Quarter: 2014Q1

REPORT INFORMATION
  Report Type: Report from Study
  Country: KR (occurrence: KR)
  Receive Date: 20140127
  Receipt Date: 20140206
  Transmission Date: 20141002
  Serious: Yes (Hospitalization)
  Sender: FDA-Public Use
  Company Number: KR-PFIZER INC-2014017312

PATIENT
  Age: 65 Year
  Sex: Male
  Weight: 53 kg

DRUGS (11)
  1. CRIZOTINIB [Suspect]
     Indication: NON-SMALL CELL LUNG CANCER
     Dosage: 250 MG, CONTINUOUS TWICE DAILY
     Route: 048
     Dates: start: 20131218
  2. PEMETREXED [Suspect]
     Indication: NON-SMALL CELL LUNG CANCER
     Dosage: 820 MG, DAY 1 OF 21 DAY CYCLE
     Route: 042
     Dates: start: 20120730, end: 20121112
  3. CISPLATIN [Suspect]
     Indication: NON-SMALL CELL LUNG CANCER
     Dosage: 123 MG, DAY 1 OF 21 DAY CYCLE
     Route: 042
     Dates: start: 20120730, end: 20121112
  4. CODEINE [Concomitant]
     Indication: COUGH
     Dosage: UNK
     Dates: start: 20130708, end: 20140107
  5. ERDOSTEINE [Concomitant]
     Indication: COUGH
     Dosage: UNK
     Dates: start: 20130708, end: 20140107
  6. ZOLPIDEM [Concomitant]
     Indication: INSOMNIA
     Dosage: UNK
     Dates: start: 20130826
  7. MAGNESIUM OXIDE [Concomitant]
     Indication: CONSTIPATION
     Dosage: UNK
     Dates: start: 20130826, end: 20131230
  8. MAGNESIUM OXIDE [Concomitant]
     Dosage: UNK
     Dates: start: 20140105
  9. LOPERAMIDE [Concomitant]
     Indication: DIARRHOEA
     Dosage: UNK
     Dates: start: 20131231, end: 20140101
  10. ASTRIX [Concomitant]
     Indication: ATRIAL FIBRILLATION
     Dosage: UNK
     Dates: start: 20120921
  11. PROPAFENONE [Concomitant]
     Indication: ATRIAL FIBRILLATION
     Dosage: UNK
     Dates: start: 201106

REACTIONS (1)
  - Abdominal pain [Recovered/Resolved]
